FAERS Safety Report 4900833-9 (Version None)
Quarter: 2006Q1

REPORT INFORMATION
  Report Type: 
  Country: None (occurrence: None)
  Receive Date: 20060113
  Receipt Date: 20051015
  Transmission Date: 20060701
  Serious: No
  Sender: FDA-Public Use
  Company Number: 2005SP002664

PATIENT
  Age: 39 Year
  Sex: Female
  Weight: 74.8435 kg

DRUGS (1)
  1. LUNESTA [Suspect]
     Dosage: HS; ORAL
     Route: 048
     Dates: start: 20050701, end: 20050701

REACTIONS (2)
  - AMNESIA [None]
  - ROAD TRAFFIC ACCIDENT [None]
